FAERS Safety Report 4748149-8 (Version None)
Quarter: 2005Q3

REPORT INFORMATION
  Report Type: 
  Country: None (occurrence: None)
  Receive Date: 20050818
  Receipt Date: 20050725
  Transmission Date: 20060218
  Serious: Yes (Hospitalization)
  Sender: FDA-Public Use
  Company Number: PHRM2005FR02162

PATIENT
  Age: 81 Year
  Sex: Female

DRUGS (9)
  1. VOLTAREN [Suspect]
     Indication: PAIN
     Dosage: 1 DF, QD
     Route: 048
     Dates: start: 20050525, end: 20050528
  2. LOXEN [Concomitant]
     Indication: ESSENTIAL HYPERTENSION
     Dosage: 50 MG, BID
     Route: 048
  3. EBIXA [Suspect]
     Indication: DEMENTIA ALZHEIMER'S TYPE
     Dosage: 0.5 DF, QD
     Route: 048
     Dates: start: 20050512, end: 20050528
  4. ARICEPT [Concomitant]
     Indication: DEMENTIA ALZHEIMER'S TYPE
     Dosage: 1 DF, QD
     Route: 048
  5. LEVOTHYROX [Concomitant]
     Indication: HYPOTHYROIDISM
     Dosage: 50 UG, QD
     Route: 048
  6. LASIX [Concomitant]
     Indication: ESSENTIAL HYPERTENSION
     Dosage: 1 DF, QD
     Route: 048
  7. DIFFU K [Concomitant]
     Dosage: 600 MG, BID
     Route: 048
     Dates: start: 20050201
  8. EQUANIL [Concomitant]
     Dosage: 0.5 DF, TID
     Route: 048
     Dates: start: 20050501
  9. IMOVANE [Concomitant]
     Dosage: 7.5 MG, QD
     Route: 048
     Dates: start: 20050501

REACTIONS (21)
  - ACUTE PULMONARY OEDEMA [None]
  - BLOOD CREATININE INCREASED [None]
  - BLOOD UREA INCREASED [None]
  - C-REACTIVE PROTEIN INCREASED [None]
  - CHLAMYDIAL INFECTION [None]
  - CONJUNCTIVITIS [None]
  - COUGH [None]
  - CREPITATIONS [None]
  - DYSPNOEA [None]
  - DYSPNOEA EXERTIONAL [None]
  - EOSINOPHIL COUNT INCREASED [None]
  - GENERAL PHYSICAL HEALTH DETERIORATION [None]
  - HAEMOGLOBIN DECREASED [None]
  - LUNG DISORDER [None]
  - LUNG INFECTION [None]
  - OEDEMA PERIPHERAL [None]
  - RALES [None]
  - RASH ERYTHEMATOUS [None]
  - RASH MACULAR [None]
  - RASH MACULO-PAPULAR [None]
  - VOMITING [None]
